FAERS Safety Report 14610016 (Version 1)
Quarter: 2018Q1

REPORT INFORMATION
  Report Type: Spontaneous
  Country: US (occurrence: US)
  Receive Date: 20180307
  Receipt Date: 20180307
  Transmission Date: 20180509
  Serious: Yes (Hospitalization)
  Sender: FDA-Public Use
  Company Number: None

PATIENT
  Age: 70 Year
  Sex: Male
  Weight: 98.7 kg

DRUGS (4)
  1. ZEPATIER [Suspect]
     Active Substance: ELBASVIR\GRAZOPREVIR
  2. ATORVASTATIN [Suspect]
     Active Substance: ATORVASTATIN
  3. ZEPATIER 50/100 MG DAILY [Concomitant]
     Dates: start: 20180207
  4. ATORVASTATIN 20 MG DAILY [Concomitant]
     Dates: start: 20180207, end: 20180228

REACTIONS (1)
  - Rhabdomyolysis [None]

NARRATIVE: CASE EVENT DATE: 20180228
